FAERS Safety Report 8963123 (Version 1)
Quarter: 2012Q4

REPORT INFORMATION
  Report Type: 
  Country: US (occurrence: US)
  Receive Date: 20121214
  Receipt Date: 20121214
  Transmission Date: 20130627
  Serious: No
  Sender: FDA-Public Use
  Company Number: US-TEVA-375815USA

PATIENT
  Age: 31 Year
  Sex: Female
  Weight: 107.6 kg

DRUGS (3)
  1. PLAN B ONE-STEP [Suspect]
     Indication: POST COITAL CONTRACEPTION
     Dosage: 1.5 Milligram Daily;
     Route: 048
     Dates: start: 20121110, end: 20121110
  2. PLAN B ONE-STEP [Suspect]
     Dosage: 1.5 Milligram Daily;
     Route: 048
     Dates: start: 20121117, end: 20121117
  3. VITAMINS [Concomitant]
     Indication: MEDICAL DIET

REACTIONS (1)
  - Menstruation irregular [Not Recovered/Not Resolved]
